FAERS Safety Report 6652552-9 (Version None)
Quarter: 2010Q1

REPORT INFORMATION
  Report Type: 
  Country: None (occurrence: None)
  Receive Date: 20100325
  Receipt Date: 20100311
  Transmission Date: 20100710
  Serious: Yes (Hospitalization, Other)
  Sender: FDA-Public Use
  Company Number: US-MYLANLABS-2010S1004074

PATIENT
  Age: 78 Year
  Sex: Female

DRUGS (2)
  1. CARBOPLATIN [Suspect]
     Indication: OVARIAN CANCER
     Route: 065
  2. PACLITAXEL [Suspect]
     Indication: OVARIAN CANCER
     Route: 065

REACTIONS (1)
  - ACUTE MYELOMONOCYTIC LEUKAEMIA [None]
